FAERS Safety Report 4807851-X (Version None)
Quarter: 2005Q4

REPORT INFORMATION
  Report Type: 
  Country: None (occurrence: None)
  Receive Date: 20051020
  Receipt Date: 20051011
  Transmission Date: 20060501
  Serious: Yes (Other)
  Sender: FDA-Public Use
  Company Number: 2005141931

PATIENT
  Age: 64 Year
  Sex: Male

DRUGS (1)
  1. AMLODIPINE [Suspect]
     Indication: HYPERTENSION
     Dosage: (5 MG), ORAL
     Route: 048
     Dates: start: 20051005

REACTIONS (2)
  - BLINDNESS [None]
  - VISUAL DISTURBANCE [None]
